FAERS Safety Report 8882074 (Version 1)
Quarter: 2012Q4

REPORT INFORMATION
  Report Type: Report from Study
  Country: BR (occurrence: BR)
  Receive Date: 20121102
  Receipt Date: 20121102
  Transmission Date: 20130627
  Serious: Yes (Other)
  Sender: FDA-Public Use
  Company Number: BR-ABBOTT-12P-020-1001075-00

PATIENT
  Sex: Female
  Weight: 50 kg

DRUGS (5)
  1. HUMIRA [Suspect]
     Indication: RHEUMATOID ARTHRITIS
     Route: 058
     Dates: start: 201206
  2. ARAVA [Concomitant]
     Indication: RHEUMATOID ARTHRITIS
     Route: 048
     Dates: start: 201110
  3. PURAN T4 [Concomitant]
     Indication: HYPOTHYROIDISM
     Route: 048
  4. COVERSYL [Concomitant]
     Indication: BLOOD PRESSURE MANAGEMENT
     Dosage: 1 tablet daily
     Route: 048
     Dates: start: 201010
  5. SERTRALINE [Concomitant]
     Indication: DEPRESSION
     Dosage: 1 tablet daily
     Route: 048
     Dates: start: 201110

REACTIONS (1)
  - Patient-device incompatibility [Recovered/Resolved]
